FAERS Safety Report 5804500-9 (Version None)
Quarter: 2008Q3

REPORT INFORMATION
  Report Type: 
  Country: None (occurrence: None)
  Receive Date: 20080709
  Receipt Date: 20080703
  Transmission Date: 20090109
  Serious: Yes (Hospitalization)
  Sender: FDA-Public Use
  Company Number: D0057525A

PATIENT
  Sex: Female

DRUGS (3)
  1. REQUIP [Suspect]
     Indication: PARKINSON'S DISEASE
     Route: 048
     Dates: start: 20080101, end: 20080101
  2. L-DOPA [Suspect]
     Indication: PARKINSON'S DISEASE
     Route: 048
     Dates: end: 20080101
  3. REQUIP [Concomitant]
     Indication: PARKINSON'S DISEASE
     Route: 048
     Dates: end: 20080101

REACTIONS (2)
  - AKINESIA [None]
  - PARKINSON'S DISEASE [None]
